FAERS Safety Report 10643602 (Version 2)
Quarter: 2015Q2

REPORT INFORMATION
  Report Type: Spontaneous
  Country: US (occurrence: US)
  Receive Date: 20141210
  Receipt Date: 20150612
  Transmission Date: 20150821
  Serious: Yes (Death, Other)
  Sender: FDA-Public Use
  Company Number: US-CELGENE-USA-2014121386

PATIENT
  Age: 70 Year
  Sex: Female

DRUGS (1)
  1. REVLIMID [Suspect]
     Active Substance: LENALIDOMIDE
     Indication: MYELODYSPLASTIC SYNDROME
     Dosage: 2.5 MILLIGRAM
     Route: 048
     Dates: start: 20140911, end: 2014

REACTIONS (4)
  - Respiratory distress [Fatal]
  - Stevens-Johnson syndrome [Fatal]
  - Tachyarrhythmia [Fatal]
  - Hypotension [Fatal]

NARRATIVE: CASE EVENT DATE: 20141001
